FAERS Safety Report 20321996 (Version 38)
Quarter: 2023Q2

REPORT INFORMATION
  Report Type: Report from Study
  Country: DE (occurrence: None)
  Receive Date: 20220111
  Receipt Date: 20230602
  Transmission Date: 20230722
  Serious: Yes (Life-Threatening, Hospitalization, Other)
  Sender: FDA-Public Use
  Company Number: DE-ROCHE-2998799

PATIENT
  Age: 52 Year
  Sex: Female
  Weight: 47 kg

DRUGS (13)
  1. ATEZOLIZUMAB [Suspect]
     Active Substance: ATEZOLIZUMAB
     Indication: Triple negative breast cancer
     Dosage: MOST RECENT DOSE OF ATEZOLIZUMAB PRIOR TO ADVERSE EVENT ONSET 28/DEC/2021 840 MG
     Route: 041
     Dates: start: 20211214
  2. PACLITAXEL [Suspect]
     Active Substance: PACLITAXEL
     Indication: Triple negative breast cancer
     Dosage: MOST RECENT DOSE OF PACLITAXEL PRIOR TO ADVERSE EVENT ONSET 28/DEC/2021 113 MG
     Route: 042
     Dates: start: 20211214
  3. VITAMIN K1 [Concomitant]
     Active Substance: PHYTONADIONE
     Indication: International normalised ratio increased
     Route: 065
     Dates: start: 20220115, end: 20220116
  4. PEGFILGRASTIM [Concomitant]
     Active Substance: PEGFILGRASTIM
     Route: 058
     Dates: start: 20220511, end: 20220511
  5. PEGFILGRASTIM [Concomitant]
     Active Substance: PEGFILGRASTIM
     Route: 058
     Dates: start: 20220525, end: 20220525
  6. PEGFILGRASTIM [Concomitant]
     Active Substance: PEGFILGRASTIM
     Route: 058
     Dates: start: 20220608, end: 20220608
  7. PEGFILGRASTIM [Concomitant]
     Active Substance: PEGFILGRASTIM
     Route: 058
     Dates: start: 20220622, end: 20220622
  8. AMPICILLIN SODIUM\SULBACTAM SODIUM [Concomitant]
     Active Substance: AMPICILLIN SODIUM\SULBACTAM SODIUM
     Route: 042
     Dates: start: 20220102, end: 20220106
  9. METFORMIN [Concomitant]
     Active Substance: METFORMIN HYDROCHLORIDE
     Dates: start: 20220316, end: 20220318
  10. JANUVIA [Concomitant]
     Active Substance: SITAGLIPTIN PHOSPHATE
     Dates: start: 20220325, end: 20220425
  11. JANUVIA [Concomitant]
     Active Substance: SITAGLIPTIN PHOSPHATE
     Dates: start: 20220426, end: 20220504
  12. JANUVIA [Concomitant]
     Active Substance: SITAGLIPTIN PHOSPHATE
     Dates: start: 20220505, end: 20230115
  13. REPAGLINIDE [Concomitant]
     Active Substance: REPAGLINIDE
     Dates: start: 20220505

REACTIONS (4)
  - Immune-mediated hepatitis [Recovered/Resolved with Sequelae]
  - Acute kidney injury [Recovered/Resolved]
  - Immune-mediated enterocolitis [Recovered/Resolved with Sequelae]
  - Steroid diabetes [Not Recovered/Not Resolved]

NARRATIVE: CASE EVENT DATE: 20211230
